FAERS Safety Report 19216948 (Version 1)
Quarter: 2021Q2

REPORT INFORMATION
  Report Type: Spontaneous
  Country: US (occurrence: US)
  Receive Date: 20210505
  Receipt Date: 20210505
  Transmission Date: 20210717
  Serious: No
  Sender: FDA-Public Use
  Company Number: None

PATIENT
  Age: 94 Year
  Sex: Male
  Weight: 87.5 kg

DRUGS (14)
  1. CENTRUM SILVER [Concomitant]
     Active Substance: MINERALS\VITAMINS
  2. ELIQUIS [Concomitant]
     Active Substance: APIXABAN
  3. OFLOXACIN. [Concomitant]
     Active Substance: OFLOXACIN
  4. PREDNISONE. [Concomitant]
     Active Substance: PREDNISONE
  5. POTASSIUM [Concomitant]
     Active Substance: POTASSIUM
  6. VITAMIN D2 [Concomitant]
     Active Substance: ERGOCALCIFEROL
  7. FUROSEMIDE. [Concomitant]
     Active Substance: FUROSEMIDE
  8. LIPITOR [Concomitant]
     Active Substance: ATORVASTATIN CALCIUM
  9. TAMSULOSIN HCL [Concomitant]
     Active Substance: TAMSULOSIN HYDROCHLORIDE
  10. KETOCONAZOLE. [Concomitant]
     Active Substance: KETOCONAZOLE
  11. COMBIGAN [Concomitant]
     Active Substance: BRIMONIDINE TARTRATE\TIMOLOL MALEATE
  12. METOPROLOL SUCCINATE ER [Concomitant]
     Active Substance: METOPROLOL SUCCINATE
  13. AMOXICILLIN. [Concomitant]
     Active Substance: AMOXICILLIN
  14. ABIRATERONE. [Suspect]
     Active Substance: ABIRATERONE ACETATE
     Indication: PROSTATE CANCER
     Route: 048
     Dates: start: 20210304, end: 20210401

REACTIONS (2)
  - Fatigue [None]
  - Aphasia [None]

NARRATIVE: CASE EVENT DATE: 20210401
